FAERS Safety Report 10431709 (Version 1)
Quarter: 2014Q3

REPORT INFORMATION
  Report Type: Spontaneous
  Country: GB (occurrence: None)
  Receive Date: 20140903
  Receipt Date: 20140903
  Transmission Date: 20150326
  Serious: Yes (Hospitalization)
  Sender: FDA-Public Use
  Company Number: FK201403399

PATIENT
  Age: 78 Year
  Sex: Male

DRUGS (10)
  1. ALENDRONIC ACID (ALENDRONIC ACID) [Concomitant]
     Active Substance: ALENDRONIC ACID
  2. DIPYRIDAMOLE (DIPYRIDAMOLE) [Concomitant]
     Active Substance: DIPYRIDAMOLE
  3. SPIRONOLACTONE (SPIRONOLACTONE) [Suspect]
     Active Substance: SPIRONOLACTONE
     Indication: PRODUCT USED FOR UNKNOWN INDICATION
  4. FUROSEMIDE (FUROSEMIDE) [Suspect]
     Active Substance: FUROSEMIDE
     Indication: PRODUCT USED FOR UNKNOWN INDICATION
     Route: 048
     Dates: end: 20120404
  5. CALCICHEW D3 (LEKOVIT CA) [Concomitant]
     Active Substance: CALCIUM\CHOLECALCIFEROL
  6. OMACOR (OMEGA-3-ACID ETHYL ESTER) [Concomitant]
  7. OMEPRAZOLE (OMEPRAZOLE) [Concomitant]
     Active Substance: OMEPRAZOLE
  8. PREDNISOLONE (PREDNISOLONE) [Concomitant]
     Active Substance: PREDNISOLONE
  9. RAMIPRIL (RAMIPRIL) [Suspect]
     Active Substance: RAMIPRIL
     Indication: PRODUCT USED FOR UNKNOWN INDICATION
     Route: 048
     Dates: end: 20120404
  10. ASPIRIN (ACETYLSALICYLIC ACID) [Concomitant]
     Active Substance: ASPIRIN

REACTIONS (8)
  - Abdominal pain [None]
  - Diverticulitis [None]
  - Infection [None]
  - Renal impairment [None]
  - Tubulointerstitial nephritis [None]
  - Oedema peripheral [None]
  - Pyrexia [None]
  - Nephropathy toxic [None]
